FAERS Safety Report 7303730-7 (Version None)
Quarter: 2011Q1

REPORT INFORMATION
  Report Type: 
  Country: None (occurrence: None)
  Receive Date: 20110221
  Receipt Date: 20110210
  Transmission Date: 20110831
  Serious: Yes (Other)
  Sender: FDA-Public Use
  Company Number: US-ROCHE-735749

PATIENT
  Sex: Male
  Weight: 102.1 kg

DRUGS (2)
  1. ACCUTANE [Suspect]
     Indication: ACNE
     Route: 065
     Dates: start: 19860901, end: 19870930
  2. ACCUTANE [Suspect]
     Route: 065
     Dates: start: 19990405, end: 20010101

REACTIONS (4)
  - INTESTINAL OBSTRUCTION [None]
  - COLITIS ULCERATIVE [None]
  - INFLAMMATORY BOWEL DISEASE [None]
  - GASTROINTESTINAL INJURY [None]
